FAERS Safety Report 12749115 (Version 1)
Quarter: 2016Q3

REPORT INFORMATION
  Report Type: Spontaneous
  Country: US (occurrence: US)
  Receive Date: 20160915
  Receipt Date: 20160915
  Transmission Date: 20161109
  Serious: Yes (Hospitalization, Other)
  Sender: FDA-Public Use
  Company Number: US-UNITED THERAPEUTICS-UNT-2016-014258

PATIENT
  Age: 34 Year
  Sex: Female

DRUGS (3)
  1. REMODULIN [Suspect]
     Active Substance: TREPROSTINIL
     Indication: PULMONARY ARTERIAL HYPERTENSION
     Dosage: UNK
     Route: 058
     Dates: start: 20130301
  2. ADCIRCA [Suspect]
     Active Substance: TADALAFIL
     Indication: PULMONARY ARTERIAL HYPERTENSION
     Dosage: UNK
     Route: 048
     Dates: start: 20131101
  3. OPSUMIT [Concomitant]
     Active Substance: MACITENTAN
     Indication: PULMONARY ARTERIAL HYPERTENSION
     Dosage: UNK
     Route: 048
     Dates: start: 20141101

REACTIONS (11)
  - Chest discomfort [Unknown]
  - Cardiac operation [Recovered/Resolved]
  - Pneumonia [Not Recovered/Not Resolved]
  - Dressler^s syndrome [Not Recovered/Not Resolved]
  - Infusion site irritation [Recovered/Resolved with Sequelae]
  - Infusion site pain [Recovered/Resolved with Sequelae]
  - Nausea [Recovering/Resolving]
  - Cough [Not Recovered/Not Resolved]
  - Chest pain [Unknown]
  - Oxygen saturation decreased [Recovering/Resolving]
  - Pyrexia [Not Recovered/Not Resolved]

NARRATIVE: CASE EVENT DATE: 2016
